FAERS Safety Report 8344288-3 (Version None)
Quarter: 2012Q2

REPORT INFORMATION
  Report Type: 
  Country: None (occurrence: None)
  Receive Date: 20120402
  Receipt Date: 20120203
  Transmission Date: 20120825
  Serious: Yes (Other)
  Sender: FDA-Public Use
  Company Number: 318625USA

PATIENT
  Age: 68 Year
  Sex: Female

DRUGS (1)
  1. VENLAFAXINE [Suspect]
     Indication: HOT FLUSH
     Dosage: 75 MG (75 MG, 1 IN 1 D), ORAL
     Route: 048

REACTIONS (8)
  - FEELING ABNORMAL [None]
  - MALAISE [None]
  - HEADACHE [None]
  - ABDOMINAL DISCOMFORT [None]
  - DRUG INEFFECTIVE [None]
  - CRYING [None]
  - WITHDRAWAL SYNDROME [None]
  - NERVOUSNESS [None]
